FAERS Safety Report 4370429-9 (Version None)
Quarter: 2004Q2

REPORT INFORMATION
  Report Type: 
  Country: None (occurrence: None)
  Receive Date: 20040603
  Receipt Date: 20040209
  Transmission Date: 20050107
  Serious: Yes (Hospitalization)
  Sender: FDA-Public Use
  Company Number: US-BRISTOL-MYERS SQUIBB COMPANY-12501060

PATIENT
  Age: 49 Year
  Sex: Male
  Weight: 74 kg

DRUGS (10)
  1. ABILIFY [Suspect]
     Indication: SCHIZOAFFECTIVE DISORDER
     Dosage: 10 MG/DAY INITIATED ON 29-JAN-2004
     Route: 048
     Dates: start: 20040129
  2. SYNTHROID [Concomitant]
     Dosage: TAKEN FOR A FEW YEARS
  3. ASACOL [Concomitant]
     Dosage: 2 TABLETS THREE TIMES DAILY FOR A FEW YEARS
  4. VISTARIL [Concomitant]
  5. PEPCID [Concomitant]
  6. TRAZODONE HCL [Concomitant]
     Dosage: AT BEDTIME
  7. COGENTIN [Concomitant]
  8. FLEXERIL [Concomitant]
     Dosage: AT BEDTIME
  9. RISPERDAL [Concomitant]
  10. LUVOX [Concomitant]
     Dosage: AT BEDTIME

REACTIONS (1)
  - HEADACHE [None]
